FAERS Safety Report 5667413-1 (Version None)
Quarter: 2008Q1

REPORT INFORMATION
  Report Type: 
  Country: None (occurrence: None)
  Receive Date: 20080315
  Receipt Date: 20080122
  Transmission Date: 20080703
  Serious: No
  Sender: FDA-Public Use
  Company Number: US-ABBOTT-08P-163-0434561-00

PATIENT
  Sex: Female

DRUGS (4)
  1. HUMIRA [Suspect]
     Indication: RHEUMATOID ARTHRITIS
     Route: 058
     Dates: start: 20071226, end: 20080123
  2. METHOTREXATE [Suspect]
     Indication: RHEUMATOID ARTHRITIS
  3. NICOTINE [Concomitant]
     Indication: SMOKING CESSATION THERAPY
     Dosage: PATCH
     Dates: start: 20080123
  4. METHOTREXATE [Concomitant]
     Route: 048
     Dates: start: 20050101

REACTIONS (4)
  - GINGIVAL DISORDER [None]
  - ORAL PAIN [None]
  - STOMATITIS [None]
  - TONGUE DRY [None]
